FAERS Safety Report 9157616 (Version 1)
Quarter: 2013Q1

REPORT INFORMATION
  Report Type: Spontaneous
  Country: PT (occurrence: None)
  Receive Date: 20130213
  Receipt Date: 20130213
  Transmission Date: 20140127
  Serious: Yes (Other)
  Sender: FDA-Public Use
  Company Number: IMP_06550_2013

PATIENT
  Age: 19 Year
  Sex: Female

DRUGS (1)
  1. MINOCYCLINE (MINOCYCLINE) [Suspect]
     Indication: ACNE
     Dosage: DF, (6 WEEKS UNTIL NOT CONTINUING)

REACTIONS (1)
  - Type 2 lepra reaction [None]
